FAERS Safety Report 23968748 (Version 2)
Quarter: 2024Q2

REPORT INFORMATION
  Report Type: Spontaneous
  Country: AU (occurrence: AU)
  Receive Date: 20240612
  Receipt Date: 20240621
  Transmission Date: 20240716
  Serious: Yes (Other)
  Sender: FDA-Public Use
  Company Number: AU-PFIZER INC-PV202400074991

PATIENT
  Sex: Male

DRUGS (2)
  1. VYNDAMAX [Interacting]
     Active Substance: TAFAMIDIS
     Indication: Cardiac amyloidosis
     Dosage: 61 MG, 1X/DAY
     Dates: start: 20231129
  2. VUTRISIRAN [Interacting]
     Active Substance: VUTRISIRAN
     Dosage: UNK

REACTIONS (2)
  - Drug interaction [Unknown]
  - Liver function test increased [Unknown]
